FAERS Safety Report 6261269-4 (Version None)
Quarter: 2009Q3

REPORT INFORMATION
  Report Type: 
  Country: None (occurrence: None)
  Receive Date: 20090709
  Receipt Date: 20081006
  Transmission Date: 20100115
  Serious: No
  Sender: FDA-Public Use
  Company Number: US-KINGPHARMUSA00001-K200801170

PATIENT
  Sex: Female

DRUGS (2)
  1. LEVOXYL [Suspect]
     Dates: start: 20080101
  2. THYROID TAB [Suspect]
     Dosage: 50 MCG, UNK
     Dates: start: 20080101

REACTIONS (2)
  - BLOOD GLUCOSE DECREASED [None]
  - FEELING JITTERY [None]
